FAERS Safety Report 6933902-2 (Version None)
Quarter: 2010Q3

REPORT INFORMATION
  Report Type: 
  Country: None (occurrence: None)
  Receive Date: 20100820
  Receipt Date: 20100811
  Transmission Date: 20110219
  Serious: Yes (Hospitalization)
  Sender: FDA-Public Use
  Company Number: DE-ROCHE-719620

PATIENT
  Age: 72 Year
  Sex: Male
  Weight: 125 kg

DRUGS (8)
  1. KEVATRIL [Suspect]
     Indication: PRODUCT USED FOR UNKNOWN INDICATION
     Route: 042
     Dates: start: 20100707
  2. BEVACIZUMAB [Suspect]
     Dosage: UNIT DOSE
     Route: 042
     Dates: start: 20100707
  3. IRINOTECAN HCL [Suspect]
     Route: 042
     Dates: start: 20100707
  4. FLUOROURACIL [Suspect]
     Dosage: BOLUS DOSE.
     Route: 042
     Dates: start: 20100707
  5. FLUOROURACIL [Suspect]
     Route: 042
     Dates: start: 20100707
  6. FOLINIC ACID [Suspect]
     Route: 042
     Dates: start: 20100707
  7. DEXAMETHASONE [Suspect]
     Indication: PRODUCT USED FOR UNKNOWN INDICATION
     Route: 042
     Dates: start: 20100707
  8. ATROPIN [Suspect]
     Indication: PRODUCT USED FOR UNKNOWN INDICATION
     Route: 058
     Dates: start: 20100707

REACTIONS (1)
  - BILIARY COLIC [None]
